FAERS Safety Report 5703922-4 (Version None)
Quarter: 2008Q2

REPORT INFORMATION
  Report Type: 
  Country: None (occurrence: None)
  Receive Date: 20080409
  Receipt Date: 20080331
  Transmission Date: 20081010
  Serious: No
  Sender: FDA-Public Use
  Company Number: DSU-2008-00467

PATIENT
  Age: 79 Year
  Sex: Female

DRUGS (1)
  1. WELCHOL [Suspect]
     Indication: DRUG USE FOR UNKNOWN INDICATION
     Dosage: 1250 MG (625 MG, BID) PER ORAL
     Route: 048
     Dates: start: 20080301

REACTIONS (2)
  - DYSPHAGIA [None]
  - PHARMACEUTICAL PRODUCT COMPLAINT [None]
